FAERS Safety Report 13424794 (Version 3)
Quarter: 2017Q4

REPORT INFORMATION
  Report Type: Report from Study
  Country: US (occurrence: US)
  Receive Date: 20170410
  Receipt Date: 20171026
  Transmission Date: 20180320
  Serious: Yes (Death, Hospitalization, Other)
  Sender: FDA-Public Use
  Company Number: US-ACTELION-A-US2016-146573

PATIENT
  Age: 71 Year
  Sex: Female

DRUGS (2)
  1. OPSUMIT [Suspect]
     Active Substance: MACITENTAN
     Indication: PULMONARY HYPERTENSION
     Dosage: 10 MG, QD
     Route: 048
     Dates: start: 20140217
  2. ADCIRCA [Concomitant]
     Active Substance: TADALAFIL

REACTIONS (7)
  - Asthenia [Recovering/Resolving]
  - Transfusion [Unknown]
  - Malaise [Recovering/Resolving]
  - Death [Fatal]
  - Atrial fibrillation [Recovering/Resolving]
  - Fatigue [Recovering/Resolving]
  - Vaginal infection [Unknown]

NARRATIVE: CASE EVENT DATE: 201611
